FAERS Safety Report 21860621 (Version 1)
Quarter: 2023Q1

REPORT INFORMATION
  Report Type: Spontaneous
  Country: US (occurrence: None)
  Receive Date: 20230113
  Receipt Date: 20230113
  Transmission Date: 20230417
  Serious: Yes (Hospitalization)
  Sender: FDA-Public Use
  Company Number: None

PATIENT
  Age: 59 Year
  Sex: Male
  Weight: 95.89 kg

DRUGS (26)
  1. EPCLUSA [Suspect]
     Active Substance: SOFOSBUVIR\VELPATASVIR
     Indication: Hepatitis C
     Dosage: OTHER QUANTITY : 400-100MG TABLET;?FREQUENCY : DAILY;?
     Route: 048
     Dates: start: 20181026, end: 20190118
  2. HYDROMORPHONE [Concomitant]
     Active Substance: HYDROMORPHONE
  3. COLACE [Concomitant]
     Active Substance: DOCUSATE SODIUM
  4. NYSTATIN [Concomitant]
     Active Substance: NYSTATIN
  5. SENOKOT [Concomitant]
     Active Substance: SENNOSIDES
  6. SEPTRA [Concomitant]
     Active Substance: SULFAMETHOXAZOLE\TRIMETHOPRIM
  7. AMITRIPTYLINE [Concomitant]
     Active Substance: AMITRIPTYLINE
  8. TYLENOL [Concomitant]
     Active Substance: ACETAMINOPHEN
  9. ZOPICLONE [Concomitant]
     Active Substance: ZOPICLONE
  10. LIPITOR [Concomitant]
     Active Substance: ATORVASTATIN CALCIUM
  11. MAGNESIUM OXIDE [Concomitant]
     Active Substance: MAGNESIUM OXIDE
  12. MYFORTIC [Concomitant]
     Active Substance: MYCOPHENOLATE SODIUM
  13. NEORAL [Concomitant]
     Active Substance: CYCLOSPORINE
  14. CIPROFLOXACIN [Concomitant]
     Active Substance: CIPROFLOXACIN
  15. BISOPROLOL [Concomitant]
     Active Substance: BISOPROLOL
  16. CALCIUM CARBONATE [Concomitant]
     Active Substance: CALCIUM CARBONATE
  17. VITAMIN D [Concomitant]
     Active Substance: VITAMIN D NOS
  18. FERROUS FUMARATE [Concomitant]
     Active Substance: FERROUS FUMARATE
  19. ASPIRIN [Concomitant]
     Active Substance: ASPIRIN
  20. ALENDRONATE [Concomitant]
     Active Substance: ALENDRONATE SODIUM
  21. LASIX [Concomitant]
     Active Substance: FUROSEMIDE
  22. GABAPENTIN [Concomitant]
     Active Substance: GABAPENTIN
  23. PREDNISONE [Concomitant]
     Active Substance: PREDNISONE
  24. VALCYTE [Concomitant]
     Active Substance: VALGANCICLOVIR HYDROCHLORIDE
  25. LANTUS [Concomitant]
     Active Substance: INSULIN GLARGINE
  26. HUMALOG [Concomitant]
     Active Substance: INSULIN LISPRO

REACTIONS (2)
  - Pneumonia [None]
  - Transplant dysfunction [None]

NARRATIVE: CASE EVENT DATE: 20181116
